FAERS Safety Report 8767938 (Version 2)
Quarter: 2012Q4

REPORT INFORMATION
  Report Type: 
  Country: GB (occurrence: GB)
  Receive Date: 20120904
  Receipt Date: 20121012
  Transmission Date: 20130627
  Serious: Yes (Other)
  Sender: FDA-Public Use
  Company Number: GB-BAUSCH-BL-2012-000629

PATIENT
  Sex: Male

DRUGS (5)
  1. DEXAMETHASONE [Suspect]
     Indication: MULTIPLE MYELOMA
  2. BORTEZOMIB [Suspect]
     Indication: MULTIPLE MYELOMA
  3. NO DRUG NAME [Concomitant]
     Indication: MULTIPLE MYELOMA
  4. NO DRUG NAME [Concomitant]
     Indication: MULTIPLE MYELOMA
  5. NO DRUG NAME [Concomitant]
     Indication: MULTIPLE MYELOMA

REACTIONS (3)
  - Renal failure [Unknown]
  - Neuropathy peripheral [Recovered/Resolved]
  - Plasma cell myeloma [Unknown]
